FAERS Safety Report 8847616 (Version 1)
Quarter: 2012Q4

REPORT INFORMATION
  Report Type: 
  Country: US (occurrence: US)
  Receive Date: 20121018
  Receipt Date: 20121018
  Transmission Date: 20130627
  Serious: Yes (Hospitalization, Other)
  Sender: FDA-Public Use
  Company Number: US-ELI_LILLY_AND_COMPANY-US201210002378

PATIENT
  Sex: Female
  Weight: 53.52 kg

DRUGS (11)
  1. BYETTA [Suspect]
     Dosage: UNK
  2. CENTRUM SILVER [Concomitant]
     Dosage: UNK
  3. CALCIUM [Concomitant]
     Dosage: UNK
  4. MAGNESIUM [Concomitant]
     Dosage: UNK
  5. FIBER [Concomitant]
     Dosage: UNK
  6. LIPITOR [Concomitant]
     Dosage: 10 mg, qd
  7. METFORMIN [Concomitant]
     Dosage: 1000 mg, bid
  8. ACIPHEX [Concomitant]
     Dosage: UNK
  9. CARVEDILOL [Concomitant]
     Dosage: 35.5 mg, bid
     Route: 048
  10. KEPPRA [Concomitant]
     Dosage: 500 mg, bid
  11. NIACIN [Concomitant]
     Indication: ANGIOPLASTY
     Dosage: 1000 mg, each evening
     Dates: start: 1999

REACTIONS (3)
  - Subarachnoid haemorrhage [Recovered/Resolved]
  - Small intestinal obstruction [Recovered/Resolved]
  - Vomiting [Unknown]
